FAERS Safety Report 26148600 (Version 1)
Quarter: 2025Q4

REPORT INFORMATION
  Report Type: Spontaneous
  Country: TH (occurrence: TH)
  Receive Date: 20251212
  Receipt Date: 20251212
  Transmission Date: 20260118
  Serious: Yes (Other)
  Sender: SANDOZ
  Company Number: TH-SANDOZ-SDZ2025TH088761

PATIENT
  Age: 50 Year
  Sex: Female

DRUGS (1)
  1. HYRIMOZ [Suspect]
     Active Substance: ADALIMUMAB-ADAZ
     Indication: Rheumatoid arthritis
     Dosage: UNK, Q2W
     Route: 065

REACTIONS (13)
  - Anaphylactic shock [Unknown]
  - Rash [Recovering/Resolving]
  - Heart rate irregular [Unknown]
  - Skin lesion [Unknown]
  - Dizziness [Unknown]
  - Fatigue [Unknown]
  - Alopecia [Unknown]
  - Injection site rash [Unknown]
  - Urticaria [Not Recovered/Not Resolved]
  - Injection site pruritus [Unknown]
  - Injection site erythema [Unknown]
  - Arthralgia [Not Recovered/Not Resolved]
  - Swelling [Not Recovered/Not Resolved]

NARRATIVE: CASE EVENT DATE: 20251115
